FAERS Safety Report 9818068 (Version 1)
Quarter: 2013Q4

REPORT INFORMATION
  Report Type: Spontaneous
  Country: US (occurrence: None)
  Receive Date: 20131223
  Receipt Date: 20131223
  Transmission Date: 20140711
  Serious: No
  Sender: FDA-Public Use
  Company Number: 219854

PATIENT
  Age: 58 Year
  Sex: Female

DRUGS (6)
  1. PICATO GEL [Suspect]
     Indication: ACTINIC KERATOSIS
     Dosage: (1 IN 1 D TOPICAL
     Dates: start: 20121201, end: 20121202
  2. MENOPAUSE OTC PILL [Concomitant]
  3. CRESTOR (ROSUVASTATIN) [Concomitant]
  4. CLONAZEPAM (CLONAZEPAM) (CLONAZEPAM) [Concomitant]
  5. MULTIVITAM (MULTIVITAMIN) [Concomitant]
  6. VITAMIN D (VITAMIN D NOS) [Concomitant]

REACTIONS (3)
  - Application site rash [None]
  - Thermal burn [None]
  - Application site pruritus [None]
